FAERS Safety Report 8616624-1 (Version None)
Quarter: 2012Q3

REPORT INFORMATION
  Report Type: 
  Country: None (occurrence: None)
  Receive Date: 20120823
  Receipt Date: 20120820
  Transmission Date: 20120928
  Serious: Yes (Other)
  Sender: FDA-Public Use
  Company Number: CA-ROCHE-1054302

PATIENT
  Sex: Female
  Weight: 102.15 kg

DRUGS (12)
  1. ACTEMRA [Suspect]
     Indication: RHEUMATOID ARTHRITIS
     Route: 042
     Dates: start: 20120127, end: 20120127
  2. RITUXAN [Suspect]
     Indication: RHEUMATOID ARTHRITIS
     Route: 042
     Dates: start: 20081215
  3. RITUXAN [Suspect]
     Route: 042
  4. ATACAND HCT [Concomitant]
  5. NIFEDIPINE [Concomitant]
  6. GLICLAZIDE [Concomitant]
  7. ACETAMINOPHEN [Concomitant]
     Indication: PREMEDICATION
     Route: 048
     Dates: start: 20120820
  8. METHYLPREDNISOLONE [Concomitant]
     Indication: PREMEDICATION
     Route: 048
     Dates: start: 20120820, end: 20120820
  9. ZOFRAN [Concomitant]
     Indication: PREMEDICATION
     Route: 048
     Dates: start: 20120820, end: 20120820
  10. JANUVIA [Concomitant]
  11. DIPHENHYDRAMINE HCL [Concomitant]
     Indication: PREMEDICATION
     Route: 048
     Dates: start: 20120820, end: 20120820
  12. DIAMICRON [Concomitant]

REACTIONS (3)
  - HEADACHE [None]
  - DRUG INTOLERANCE [None]
  - INFUSION RELATED REACTION [None]
